FAERS Safety Report 25051668 (Version 2)
Quarter: 2025Q1

REPORT INFORMATION
  Report Type: Spontaneous
  Country: IS (occurrence: IS)
  Receive Date: 20250307
  Receipt Date: 20250317
  Transmission Date: 20250409
  Serious: Yes (Life-Threatening)
  Sender: MYLAN
  Company Number: IS-MYLANLABS-2025M1019869

PATIENT
  Sex: Female

DRUGS (2)
  1. EPIPEN [Suspect]
     Active Substance: EPINEPHRINE
     Indication: Anaphylactic reaction
  2. EPIPEN [Suspect]
     Active Substance: EPINEPHRINE

REACTIONS (2)
  - Device failure [Unknown]
  - Drug dose omission by device [Unknown]

NARRATIVE: CASE EVENT DATE: 20240101
